FAERS Safety Report 11175273 (Version 2)
Quarter: 2017Q1

REPORT INFORMATION
  Report Type: Spontaneous
  Country: US (occurrence: US)
  Receive Date: 20150609
  Receipt Date: 20170123
  Transmission Date: 20170428
  Serious: No
  Sender: FDA-Public Use
  Company Number: US-PFIZER INC-2015188772

PATIENT
  Age: 32 Year
  Sex: Female

DRUGS (29)
  1. PRILOSEC [Concomitant]
     Active Substance: OMEPRAZOLE MAGNESIUM
     Indication: GASTROOESOPHAGEAL REFLUX DISEASE
     Dosage: 20 MG, 2X/DAY
  2. LYRICA [Suspect]
     Active Substance: PREGABALIN
     Indication: MIGRAINE
     Dosage: 75 MG, 3X/DAY
     Route: 048
  3. LACTULOSE. [Concomitant]
     Active Substance: LACTULOSE
     Indication: CONSTIPATION
     Dosage: 10GM/15SYP, 15 ML, 2X/DAY
  4. VITAMIN C [Concomitant]
     Active Substance: ASCORBIC ACID
     Indication: MINERAL SUPPLEMENTATION
     Dosage: 500 MG, 1X/DAY
  5. MSIR [Concomitant]
     Active Substance: MORPHINE SULFATE
     Dosage: UNK
  6. VITAMIN D [Concomitant]
     Active Substance: CHOLECALCIFEROL
     Indication: VITAMIN D DEFICIENCY
     Dosage: 50000 IU, 1X/DAY (2X WEEK)
  7. OPANA ER [Concomitant]
     Active Substance: OXYMORPHONE HYDROCHLORIDE
     Indication: MIGRAINE
     Dosage: 2 MG, 3X/DAY
  8. NEXPLANON [Concomitant]
     Active Substance: ETONOGESTREL
     Indication: MIGRAINE
  9. DULCOLEX [Concomitant]
     Indication: CONSTIPATION
     Dosage: 1-3 TABLETS AS NEEDED NOT DAILY
  10. KYTRIL [Concomitant]
     Active Substance: GRANISETRON HYDROCHLORIDE
     Indication: NAUSEA
     Dosage: 1 MG, 2X/DAY
  11. ZOLOFT [Concomitant]
     Active Substance: SERTRALINE HYDROCHLORIDE
     Indication: DEPRESSION
     Dosage: 150 MG, 1X/DAY
  12. DEPLIN [Concomitant]
     Active Substance: LEVOMEFOLATE CALCIUM
     Indication: GENE MUTATION
     Dosage: 15 MG, 1X/DAY
  13. STOOL SOFTENER (DOCUSATE CALCIUM) [Concomitant]
     Active Substance: DOCUSATE CALCIUM
     Indication: CONSTIPATION
     Dosage: 400 MG, 2X/DAY
  14. MIRABEGRON ER [Concomitant]
     Active Substance: MIRABEGRON
     Indication: POLLAKIURIA
     Dosage: 50 MG, 1X/DAY
  15. FERROUS GLUCONATE [Concomitant]
     Active Substance: FERROUS GLUCONATE
     Indication: IRON DEFICIENCY
     Dosage: 324MG/38MG, 1X/DAY
  16. WELLBUTRIN [Concomitant]
     Active Substance: BUPROPION HYDROCHLORIDE
     Indication: DEPRESSION
     Dosage: 150 MG, 1X/DAY
  17. SYNTHROID [Concomitant]
     Active Substance: LEVOTHYROXINE SODIUM
     Indication: HYPOTHYROIDISM
     Dosage: 150 UG, 1X/DAY
  18. NEXPLANON [Concomitant]
     Active Substance: ETONOGESTREL
     Indication: ENDOMETRIOSIS
     Dosage: 68 MG, INSERTED IN LEFT ARM
     Dates: start: 20151006
  19. BENADRYL [Concomitant]
     Active Substance: DIPHENHYDRAMINE HYDROCHLORIDE
     Indication: PRURITUS
     Dosage: 25 MG, 1-3 TABLETS AS NEEDED
  20. PHENERGAN [Concomitant]
     Active Substance: PROMETHAZINE HYDROCHLORIDE
     Indication: NAUSEA
     Dosage: 25 MG, 1-2 TABLETS, AS NEEDED- VERY RARELY
  21. NAPROSYN [Concomitant]
     Active Substance: NAPROXEN
     Indication: MYALGIA
     Dosage: 500 MG, AS NEEDED VERY RARELY
  22. MS CONTIN [Concomitant]
     Active Substance: MORPHINE SULFATE
     Dosage: UNK
  23. ZANAFLEX [Concomitant]
     Active Substance: TIZANIDINE HYDROCHLORIDE
     Indication: MYALGIA
     Dosage: 4 MG, 1-2 TABLETS AS NEEDED VERY RARELY
  24. LYRICA [Suspect]
     Active Substance: PREGABALIN
     Indication: PAIN
     Dosage: 75 MG, 2X/DAY
     Route: 048
  25. LOPID [Concomitant]
     Active Substance: GEMFIBROZIL
     Indication: BLOOD CHOLESTEROL ABNORMAL
     Dosage: 600 MG, 2X/DAY
  26. MORPHINE SULFATE. [Concomitant]
     Active Substance: MORPHINE SULFATE
     Indication: MIGRAINE
     Dosage: 15 MG, 2(OR 3)X DAY
  27. NAPROSYN [Concomitant]
     Active Substance: NAPROXEN
     Indication: MUSCULOSKELETAL PAIN
  28. ESTROGEL [Concomitant]
     Active Substance: ESTRADIOL
     Indication: HAEMORRHAGE
     Dosage: 0.06 %, 1X/DAY
  29. CALCIUM CITRATE [Concomitant]
     Active Substance: CALCIUM CITRATE
     Indication: NAUSEA
     Dosage: 800 MG, 1X/DAY

REACTIONS (2)
  - Migraine [Unknown]
  - Neuralgia [Unknown]
